FAERS Safety Report 19032471 (Version 1)
Quarter: 2021Q1

REPORT INFORMATION
  Report Type: Spontaneous
  Country: US (occurrence: US)
  Receive Date: 20210319
  Receipt Date: 20210319
  Transmission Date: 20210420
  Serious: No
  Sender: FDA-Public Use
  Company Number: US-ASTELLAS-2021US003179

PATIENT
  Age: 61 Year
  Sex: Female

DRUGS (1)
  1. CRESEMBA [Suspect]
     Active Substance: ISAVUCONAZONIUM SULFATE
     Indication: PHAEOHYPHOMYCOSIS
     Dosage: UNK UNK, UNKNOWN FREQ. (PRESCRIBED FOR 12 WEEKS)
     Route: 065

REACTIONS (1)
  - Drug ineffective for unapproved indication [Unknown]
